FAERS Safety Report 9357602 (Version 1)
Quarter: 2013Q2

REPORT INFORMATION
  Report Type: Spontaneous
  Country: US (occurrence: US)
  Receive Date: 20130620
  Receipt Date: 20130620
  Transmission Date: 20140414
  Serious: Yes (Hospitalization)
  Sender: FDA-Public Use
  Company Number: US-BAYER-2013-074677

PATIENT
  Age: 26 Year
  Sex: Female

DRUGS (6)
  1. YAZ [Suspect]
     Dosage: UNK
     Dates: start: 20061101, end: 20070716
  2. YASMIN [Suspect]
     Dosage: UNK
     Dates: start: 20061101, end: 20070716
  3. SKELAXIN [Concomitant]
  4. NAPROSYN [Concomitant]
  5. TYLOX [Concomitant]
  6. DILAUDID [Concomitant]

REACTIONS (2)
  - Pulmonary embolism [None]
  - Pleuritic pain [None]
